FAERS Safety Report 6491279-3 (Version None)
Quarter: 2009Q4

REPORT INFORMATION
  Report Type: 
  Country: None (occurrence: None)
  Receive Date: 20091211
  Receipt Date: 20091207
  Transmission Date: 20100525
  Serious: Yes (Life-Threatening)
  Sender: FDA-Public Use
  Company Number: PHHY2009CA52675

PATIENT
  Sex: Male

DRUGS (3)
  1. ZOMETA [Suspect]
     Indication: METASTASES TO BONE
     Dosage: 4 MG, ONCE/SINGLE
     Route: 042
     Dates: start: 20091112
  2. DOCETAXEL [Concomitant]
     Dosage: UNK
     Dates: start: 20091112
  3. CALCIUM WITH VITAMIN D [Concomitant]
     Route: 048

REACTIONS (5)
  - ASTHENIA [None]
  - BLOOD CALCIUM DECREASED [None]
  - CONVULSION [None]
  - FATIGUE [None]
  - TETANY [None]
